FAERS Safety Report 25331432 (Version 2)
Quarter: 2025Q3

REPORT INFORMATION
  Report Type: Spontaneous
  Country: CA (occurrence: CA)
  Receive Date: 20250519
  Receipt Date: 20250715
  Transmission Date: 20251020
  Serious: Yes (Death, Hospitalization)
  Sender: PFIZER
  Company Number: CA-PFIZER INC-202400260666

PATIENT
  Age: 69 Year
  Sex: Male

DRUGS (2)
  1. ABRILADA [Suspect]
     Active Substance: ADALIMUMAB-AFZB
     Indication: Crohn^s disease
     Route: 058
     Dates: start: 20220829
  2. ABRILADA [Suspect]
     Active Substance: ADALIMUMAB-AFZB

REACTIONS (3)
  - Encephalopathy [Fatal]
  - Varices oesophageal [Unknown]
  - Hypoaesthesia [Unknown]
